FAERS Safety Report 9446921 (Version 1)
Quarter: 2013Q3

REPORT INFORMATION
  Report Type: Spontaneous
  Country: US (occurrence: US)
  Receive Date: 20130807
  Receipt Date: 20130807
  Transmission Date: 20140515
  Serious: No
  Sender: FDA-Public Use
  Company Number: US-AMGEN-USASP2013052054

PATIENT
  Age: 64 Year
  Sex: Female

DRUGS (2)
  1. ENBREL [Suspect]
     Indication: RHEUMATOID ARTHRITIS
     Dosage: 50 MG, QWK
     Route: 065
     Dates: start: 20090805
  2. CIMZIA [Concomitant]
     Dosage: UNK UNK, TWO SHOTS Q2WK,  THEN WENT TO MONTHLY
     Dates: start: 201210, end: 201303

REACTIONS (4)
  - Musculoskeletal stiffness [Not Recovered/Not Resolved]
  - Oedema peripheral [Not Recovered/Not Resolved]
  - Dental caries [Unknown]
  - Injection site pain [Not Recovered/Not Resolved]
